FAERS Safety Report 8949241 (Version 5)
Quarter: 2013Q1

REPORT INFORMATION
  Report Type: Spontaneous
  Country: US (occurrence: US)
  Receive Date: 20121206
  Receipt Date: 20130222
  Transmission Date: 20140127
  Serious: Yes (Hospitalization)
  Sender: FDA-Public Use
  Company Number: US-PFIZER INC-2012251722

PATIENT
  Sex: Female

DRUGS (4)
  1. PROTONIX [Suspect]
     Indication: IRRITABLE BOWEL SYNDROME
     Dosage: UNK
     Dates: start: 20110609, end: 20120430
  2. PROTONIX [Suspect]
     Dosage: UNK
     Dates: end: 20121201
  3. LIPITOR [Suspect]
     Dosage: UNK
  4. LOSARTAN [Suspect]
     Dosage: UNK

REACTIONS (4)
  - Gastric infection [Unknown]
  - Cardiac disorder [Unknown]
  - Hearing impaired [Unknown]
  - Off label use [Unknown]
